FAERS Safety Report 4395570-6 (Version None)
Quarter: 2004Q3

REPORT INFORMATION
  Report Type: 
  Country: None (occurrence: None)
  Receive Date: 20040709
  Receipt Date: 20040629
  Transmission Date: 20050211
  Serious: Yes (Hospitalization, Other)
  Sender: FDA-Public Use
  Company Number: 2003030361

PATIENT
  Sex: Female

DRUGS (5)
  1. NEURONTIN [Suspect]
     Indication: NEUROPATHY
     Dosage: ORAL
     Route: 048
     Dates: start: 19700101, end: 20000701
  2. VENLAFAXINE HCL [Suspect]
     Indication: ILL-DEFINED DISORDER
  3. ANTI-DIABETICS [Concomitant]
  4. ESTROGENIC SUBSTANCE [Concomitant]
  5. THYROID TAB [Concomitant]

REACTIONS (8)
  - ARTHRITIS [None]
  - BIPOLAR DISORDER [None]
  - DRUG HYPERSENSITIVITY [None]
  - GLOSSITIS [None]
  - MOOD SWINGS [None]
  - OVERWEIGHT [None]
  - SWOLLEN TONGUE [None]
  - TONGUE GEOGRAPHIC [None]
